FAERS Safety Report 7628408-1 (Version None)
Quarter: 2011Q3

REPORT INFORMATION
  Report Type: 
  Country: None (occurrence: None)
  Receive Date: 20110722
  Receipt Date: 20110718
  Transmission Date: 20111222
  Serious: No
  Sender: FDA-Public Use
  Company Number: US-PFIZER INC-2011162250

PATIENT
  Sex: Female
  Weight: 68.934 kg

DRUGS (3)
  1. PRISTIQ [Suspect]
     Indication: MENOPAUSAL DEPRESSION
     Dosage: 50 MG DAILY
     Route: 048
     Dates: start: 20110714
  2. ALPRAZOLAM [Suspect]
     Indication: ANXIETY
     Dosage: 1 MG DAILY
     Dates: start: 20090101, end: 20110713
  3. PRISTIQ [Suspect]
     Indication: DEPRESSION

REACTIONS (6)
  - ANXIETY [None]
  - HEART RATE INCREASED [None]
  - NERVOUSNESS [None]
  - NAUSEA [None]
  - INSOMNIA [None]
  - DECREASED APPETITE [None]
